APPROVED DRUG PRODUCT: CLORAZEPATE DIPOTASSIUM
Active Ingredient: CLORAZEPATE DIPOTASSIUM
Strength: 15MG
Dosage Form/Route: TABLET;ORAL
Application: A076911 | Product #003
Applicant: SUN PHARMACEUTICAL INDUSTRIES LTD
Approved: Sep 29, 2004 | RLD: No | RS: No | Type: DISCN